FAERS Safety Report 8171010-6 (Version None)
Quarter: 2012Q1

REPORT INFORMATION
  Report Type: 
  Country: None (occurrence: None)
  Receive Date: 20120228
  Receipt Date: 20120220
  Transmission Date: 20120608
  Serious: Yes (Other)
  Sender: FDA-Public Use
  Company Number: ES-JNJFOC-20120210359

PATIENT
  Age: 44 Year
  Sex: Male

DRUGS (1)
  1. SIMPONI [Suspect]
     Indication: PSORIATIC ARTHROPATHY
     Route: 058
     Dates: start: 20120120, end: 20120206

REACTIONS (4)
  - HYPERHIDROSIS [None]
  - PERIPHERAL COLDNESS [None]
  - OCULAR HYPERAEMIA [None]
  - CYANOSIS [None]
